FAERS Safety Report 17316341 (Version 1)
Quarter: 2020Q1

REPORT INFORMATION
  Report Type: Spontaneous
  Country: GB (occurrence: GB)
  Receive Date: 20200124
  Receipt Date: 20200124
  Transmission Date: 20200409
  Serious: Yes (Life-Threatening, Hospitalization)
  Sender: FDA-Public Use
  Company Number: GB-JNJFOC-20200126984

PATIENT
  Age: 85 Year
  Sex: Female
  Weight: 70 kg

DRUGS (11)
  1. AMIODARONE [Concomitant]
     Active Substance: AMIODARONE
  2. BUTEC [Concomitant]
     Active Substance: BUPRENORPHINE
  3. COCODAMOL [Concomitant]
     Active Substance: ACETAMINOPHEN\CODEINE PHOSPHATE
  4. PREGABALIN. [Concomitant]
     Active Substance: PREGABALIN
  5. ALENDRONIC ACID [Concomitant]
     Active Substance: ALENDRONIC ACID
  6. VAGIFEM [Concomitant]
     Active Substance: ESTRADIOL
  7. BISOPROLOL [Concomitant]
     Active Substance: BISOPROLOL
  8. LOSARTAN POTASSIUM. [Concomitant]
     Active Substance: LOSARTAN POTASSIUM
  9. TROSPIUM [Concomitant]
     Active Substance: TROSPIUM
  10. DIGOXIN. [Concomitant]
     Active Substance: DIGOXIN
  11. RIVAROXABAN [Suspect]
     Active Substance: RIVAROXABAN
     Indication: ATRIAL FIBRILLATION
     Dosage: 20 MG
     Route: 048
     Dates: start: 20141029, end: 20190219

REACTIONS (2)
  - Pulmonary embolism [Recovered/Resolved]
  - Deep vein thrombosis [Recovered/Resolved]

NARRATIVE: CASE EVENT DATE: 20190118
